FAERS Safety Report 14576696 (Version 1)
Quarter: 2018Q1

REPORT INFORMATION
  Report Type: Report from Study
  Country: US (occurrence: US)
  Receive Date: 20180227
  Receipt Date: 20180227
  Transmission Date: 20180509
  Serious: No
  Sender: FDA-Public Use
  Company Number: PHEH2018US007865

PATIENT
  Sex: Female

DRUGS (1)
  1. COSENTYX [Suspect]
     Active Substance: SECUKINUMAB
     Indication: PRODUCT USED FOR UNKNOWN INDICATION
     Dosage: 300 MG, QMO
     Route: 058

REACTIONS (8)
  - Stress [Unknown]
  - Mobility decreased [Unknown]
  - Malaise [Unknown]
  - Balance disorder [Unknown]
  - Nasopharyngitis [Unknown]
  - Arthritis [Unknown]
  - Pain [Unknown]
  - Influenza [Unknown]
